FAERS Safety Report 15757024 (Version 1)
Quarter: 2018Q4

REPORT INFORMATION
  Report Type: Spontaneous
  Country: US (occurrence: US)
  Receive Date: 20181224
  Receipt Date: 20181224
  Transmission Date: 20190205
  Serious: Yes (Hospitalization)
  Sender: FDA-Public Use
  Company Number: None

PATIENT
  Age: 74 Year
  Sex: Female

DRUGS (5)
  1. DOFETILIDE CAPSULES [Suspect]
     Active Substance: DOFETILIDE
     Indication: ATRIAL FIBRILLATION
     Route: 048
  2. AMLODIPINE [Concomitant]
     Active Substance: AMLODIPINE BESYLATE
     Dates: start: 20181219
  3. CEPHALEXIN CAP 500MG [Concomitant]
     Dates: start: 20180917
  4. PRAVASTATIN TAB 40MG [Concomitant]
     Dates: start: 20181215
  5. AMMONIUM LAC LOT 12% [Concomitant]
     Dates: start: 20181108

REACTIONS (2)
  - Treatment noncompliance [None]
  - Atrial fibrillation [None]

NARRATIVE: CASE EVENT DATE: 20181213
